FAERS Safety Report 13566023 (Version 1)
Quarter: 2017Q2

REPORT INFORMATION
  Report Type: Report from Study
  Country: None (occurrence: US)
  Receive Date: 20170520
  Receipt Date: 20170520
  Transmission Date: 20170830
  Serious: Yes (Hospitalization, Other)
  Sender: FDA-Public Use
  Company Number: US-ABBVIE-17K-163-1924943-00

PATIENT
  Sex: Male

DRUGS (2)
  1. HUMIRA [Suspect]
     Active Substance: ADALIMUMAB
     Indication: CROHN^S DISEASE
     Route: 058
     Dates: start: 2015, end: 201702
  2. HUMIRA [Suspect]
     Active Substance: ADALIMUMAB
     Route: 058
     Dates: start: 201703

REACTIONS (3)
  - Nausea [Recovered/Resolved]
  - Gastrointestinal fistula [Not Recovered/Not Resolved]
  - Crohn^s disease [Recovered/Resolved]

NARRATIVE: CASE EVENT DATE: 2016
